FAERS Safety Report 7034687-4 (Version None)
Quarter: 2010Q4

REPORT INFORMATION
  Report Type: 
  Country: None (occurrence: None)
  Receive Date: 20101008
  Receipt Date: 20100928
  Transmission Date: 20110411
  Serious: No
  Sender: FDA-Public Use
  Company Number: US-B.I. PHARMACEUTICALS,INC./RIDGEFIELD-2010-BP-10985BP

PATIENT
  Sex: Male

DRUGS (4)
  1. SPIRIVA [Suspect]
     Indication: CHRONIC OBSTRUCTIVE PULMONARY DISEASE
     Dosage: 18 MCG
     Route: 055
     Dates: start: 20100821
  2. PROCARDIA [Suspect]
     Indication: CARDIAC DISORDER
     Route: 048
     Dates: start: 20100901, end: 20100901
  3. ATENOLOL [Suspect]
     Indication: CARDIAC DISORDER
     Dosage: 25 MG
     Route: 048
     Dates: start: 19950101, end: 20100901
  4. EYE MAX VITAMIN [Concomitant]
     Indication: MACULAR DEGENERATION
     Route: 048

REACTIONS (3)
  - CONDITION AGGRAVATED [None]
  - INCREASED UPPER AIRWAY SECRETION [None]
  - JOINT SWELLING [None]
